FAERS Safety Report 14847787 (Version 2)
Quarter: 2018Q2

REPORT INFORMATION
  Report Type: Spontaneous
  Country: US (occurrence: US)
  Receive Date: 20180504
  Receipt Date: 20180516
  Transmission Date: 20180711
  Serious: No
  Sender: FDA-Public Use
  Company Number: US-GLAXOSMITHKLINE-US2018075816

PATIENT
  Sex: Female

DRUGS (6)
  1. ESTRADIOL. [Concomitant]
     Active Substance: ESTRADIOL
  2. HYDROXYCHLOROQUINE [Concomitant]
     Active Substance: HYDROXYCHLOROQUINE
  3. LYRICA [Concomitant]
     Active Substance: PREGABALIN
  4. LEVOTHYROXINE. [Concomitant]
     Active Substance: LEVOTHYROXINE
  5. PREDNISONE. [Concomitant]
     Active Substance: PREDNISONE
  6. BENLYSTA [Suspect]
     Active Substance: BELIMUMAB
     Indication: SYSTEMIC LUPUS ERYTHEMATOSUS
     Dosage: UNK UNK, CYC
     Route: 042
     Dates: start: 2017, end: 2017

REACTIONS (1)
  - Drug ineffective [Unknown]
